APPROVED DRUG PRODUCT: CINACALCET HYDROCHLORIDE
Active Ingredient: CINACALCET HYDROCHLORIDE
Strength: EQ 30MG BASE
Dosage Form/Route: TABLET;ORAL
Application: A208915 | Product #001 | TE Code: AB
Applicant: CIPLA LTD
Approved: Mar 8, 2018 | RLD: No | RS: No | Type: RX